FAERS Safety Report 17423427 (Version 2)
Quarter: 2020Q1

REPORT INFORMATION
  Report Type: Spontaneous
  Country: US (occurrence: US)
  Receive Date: 20200217
  Receipt Date: 20200305
  Transmission Date: 20200409
  Serious: No
  Sender: FDA-Public Use
  Company Number: US-BIOGEN-2020BI00838398

PATIENT
  Age: 55 Year
  Sex: Male

DRUGS (4)
  1. TYSABRI [Suspect]
     Active Substance: NATALIZUMAB
     Indication: MULTIPLE SCLEROSIS
     Dosage: INFUSED OVER 1 HOUR
     Route: 042
     Dates: start: 20180314
  2. ASPIRIN. [Concomitant]
     Active Substance: ASPIRIN
     Route: 048
     Dates: start: 20190329
  3. ACETAMINOPHEN. [Concomitant]
     Active Substance: ACETAMINOPHEN
     Dosage: EVERY 4 HOURS AS NEEDED
     Route: 048
     Dates: start: 20191121
  4. IBUPROFEN. [Concomitant]
     Active Substance: IBUPROFEN
     Dosage: 4 TIMES A DAY AS NEEDED
     Route: 048
     Dates: start: 20170827

REACTIONS (18)
  - Alanine aminotransferase increased [Unknown]
  - Haemoglobin decreased [Unknown]
  - Blood glucose increased [Unknown]
  - Asthenia [Unknown]
  - Neutrophil count increased [Unknown]
  - Wound infection [Unknown]
  - Urinary tract infection [Unknown]
  - Blood urea increased [Unknown]
  - Red blood cell count decreased [Unknown]
  - Albumin globulin ratio decreased [Unknown]
  - Haematocrit decreased [Unknown]
  - Catheter site haemorrhage [Unknown]
  - Monocyte count increased [Unknown]
  - Monocyte percentage increased [Unknown]
  - Pain [Not Recovered/Not Resolved]
  - White blood cell count increased [Not Recovered/Not Resolved]
  - Malaise [Not Recovered/Not Resolved]
  - Mean platelet volume decreased [Unknown]

NARRATIVE: CASE EVENT DATE: 202002
